FAERS Safety Report 12104947 (Version 4)
Quarter: 2016Q1

REPORT INFORMATION
  Report Type: Spontaneous
  Country: US (occurrence: US)
  Receive Date: 20160223
  Receipt Date: 20160325
  Transmission Date: 20160526
  Serious: Yes (Hospitalization)
  Sender: FDA-Public Use
  Company Number: US-UNITED THERAPEUTICS-UNT-2016-002539

PATIENT
  Age: 54 Year
  Sex: Female
  Weight: 71.2 kg

DRUGS (3)
  1. ADEMPAS [Suspect]
     Active Substance: RIOCIGUAT
     Indication: PRODUCT USED FOR UNKNOWN INDICATION
  2. REVATIO [Concomitant]
     Active Substance: SILDENAFIL CITRATE
     Indication: PRODUCT USED FOR UNKNOWN INDICATION
  3. REMODULIN [Suspect]
     Active Substance: TREPROSTINIL
     Indication: PULMONARY ARTERIAL HYPERTENSION
     Dosage: 0.13 ?G/KG, CONTINUING
     Route: 041
     Dates: start: 20090108

REACTIONS (6)
  - Fluid overload [Not Recovered/Not Resolved]
  - Hyponatraemia [Recovered/Resolved]
  - Fluid retention [Unknown]
  - Pulmonary arterial hypertension [Unknown]
  - Blood sodium increased [Recovered/Resolved]
  - Device related infection [Recovered/Resolved]

NARRATIVE: CASE EVENT DATE: 201602
